FAERS Safety Report 10632496 (Version 1)
Quarter: 2014Q4

REPORT INFORMATION
  Report Type: Spontaneous
  Country: US (occurrence: US)
  Receive Date: 20141205
  Receipt Date: 20141205
  Transmission Date: 20150529
  Serious: No
  Sender: FDA-Public Use
  Company Number: US-BRISTOL-MYERS SQUIBB COMPANY-21527361

PATIENT
  Age: 6 Month
  Sex: Female

DRUGS (1)
  1. SPRYCEL [Suspect]
     Active Substance: DASATINIB
     Indication: CHRONIC MYELOID LEUKAEMIA
     Route: 048
     Dates: start: 201404

REACTIONS (7)
  - Night sweats [None]
  - Feeling cold [None]
  - Eye swelling [None]
  - Alopecia [None]
  - Influenza like illness [None]
  - Skin discolouration [None]
  - Chills [None]
